FAERS Safety Report 18294479 (Version 1)
Quarter: 2020Q3

REPORT INFORMATION
  Report Type: Report from Study
  Country: CA (occurrence: CA)
  Receive Date: 20200922
  Receipt Date: 20200922
  Transmission Date: 20201103
  Serious: Yes (Other)
  Sender: FDA-Public Use
  Company Number: CA-ACCORD-201943

PATIENT
  Age: 38 Year
  Sex: Female

DRUGS (4)
  1. VENLAFAXINE [Suspect]
     Active Substance: VENLAFAXINE HYDROCHLORIDE
     Indication: MIGRAINE
  2. DULOXETINE. [Suspect]
     Active Substance: DULOXETINE
     Indication: MIGRAINE
  3. GABAPENTIN. [Concomitant]
     Active Substance: GABAPENTIN
  4. TOPIRAMATE. [Suspect]
     Active Substance: TOPIRAMATE
     Indication: MIGRAINE

REACTIONS (9)
  - Drug ineffective [Unknown]
  - Astrocytoma [Unknown]
  - Gait disturbance [Unknown]
  - Migraine [Unknown]
  - Brain neoplasm [Unknown]
  - Cervix carcinoma [Unknown]
  - Pulmonary embolism [Unknown]
  - Thrombosis [Unknown]
  - Hemiplegia [Unknown]
